FAERS Safety Report 14032659 (Version 1)
Quarter: 2017Q4

REPORT INFORMATION
  Report Type: Report from Study
  Country: CO (occurrence: CO)
  Receive Date: 20171003
  Receipt Date: 20171003
  Transmission Date: 20180321
  Serious: Yes (Other)
  Sender: FDA-Public Use
  Company Number: CO-ROCHE-2000982

PATIENT
  Age: 7 Year
  Sex: Female
  Weight: 33 kg

DRUGS (3)
  1. XOLAIR [Suspect]
     Active Substance: OMALIZUMAB
     Indication: URTICARIA
     Route: 058
  2. XOLAIR [Suspect]
     Active Substance: OMALIZUMAB
     Indication: ASTHMA
     Route: 058
     Dates: start: 20161202, end: 20161211
  3. CETIRIZINE [Concomitant]
     Active Substance: CETIRIZINE HYDROCHLORIDE

REACTIONS (4)
  - Coagulation test abnormal [Unknown]
  - Contusion [Unknown]
  - Drug hypersensitivity [Unknown]
  - Blood immunoglobulin E increased [Recovering/Resolving]

NARRATIVE: CASE EVENT DATE: 20161211
